FAERS Safety Report 8770619 (Version 2)
Quarter: 2013Q1

REPORT INFORMATION
  Report Type: Spontaneous
  Country: MX (occurrence: MX)
  Receive Date: 20120906
  Receipt Date: 20130111
  Transmission Date: 20140127
  Serious: Yes (Other)
  Sender: FDA-Public Use
  Company Number: MX-BAYER-2012-092306

PATIENT
  Sex: Female

DRUGS (1)
  1. CANESTEN VAGINAL CREAM [Suspect]
     Dosage: 1 %, UNK
     Route: 067

REACTIONS (1)
  - Vaginal haemorrhage [Unknown]
